FAERS Safety Report 5755774-4 (Version None)
Quarter: 2008Q2

REPORT INFORMATION
  Report Type: 
  Country: None (occurrence: None)
  Receive Date: 20080602
  Receipt Date: 20080522
  Transmission Date: 20081010
  Serious: Yes (Hospitalization, Other)
  Sender: FDA-Public Use
  Company Number: IN-AVENTIS-200814753GDDC

PATIENT
  Age: 35 Year
  Sex: Female

DRUGS (1)
  1. CEFOTAXIME SODIUM [Suspect]
     Route: 042

REACTIONS (2)
  - ANAPHYLACTIC REACTION [None]
  - INTRA-UTERINE DEATH [None]
